FAERS Safety Report 21506891 (Version 1)
Quarter: 2022Q4

REPORT INFORMATION
  Report Type: Spontaneous
  Country: US (occurrence: None)
  Receive Date: 20221025
  Receipt Date: 20221025
  Transmission Date: 20230113
  Serious: Yes (unspecified)
  Sender: FDA-Public Use
  Company Number: None

PATIENT
  Sex: Male

DRUGS (1)
  1. RETACRIT [Suspect]
     Active Substance: EPOETIN ALFA-EPBX
     Indication: Anaemia
     Dosage: 2000 UNITS OTHER SUBCUTANEOUS?
     Route: 058
     Dates: start: 202207

REACTIONS (8)
  - Product dispensing error [None]
  - Incorrect dose administered [None]
  - Haemoglobin decreased [None]
  - Chills [None]
  - Weight decreased [None]
  - Nausea [None]
  - Hypotension [None]
  - Asthenia [None]
